FAERS Safety Report 6888655-3 (Version None)
Quarter: 2010Q3

REPORT INFORMATION
  Report Type: 
  Country: None (occurrence: None)
  Receive Date: 20100730
  Receipt Date: 20100722
  Transmission Date: 20110219
  Serious: Yes (Other)
  Sender: FDA-Public Use
  Company Number: NL-AMGEN-QUU427264

PATIENT
  Age: 72 Year
  Sex: Male

DRUGS (8)
  1. ENBREL [Suspect]
     Indication: RHEUMATOID ARTHRITIS
     Route: 058
     Dates: start: 20100201, end: 20100618
  2. METHOTREXATE [Suspect]
     Indication: RHEUMATOID ARTHRITIS
     Dosage: 7.5 MG WITH AN UNKNOWN FREQUENCY
     Dates: start: 19860101, end: 20090101
  3. METHOTREXATE [Suspect]
     Dosage: 25 MG WITH AN UNKNOWN FREQUENCY
     Dates: start: 20090101, end: 20100618
  4. PLAQUENIL [Concomitant]
     Dosage: 200 MG
     Dates: start: 19900101
  5. PERSANTIN [Concomitant]
     Dates: start: 20090101
  6. ACETYLSALICYLIC ACID SRT [Concomitant]
     Dosage: 80 MG
     Dates: start: 20030101
  7. PRAVASTATIN [Concomitant]
     Dosage: 40 MG
     Dates: start: 20030101
  8. METOPROLOL TARTRATE [Concomitant]
     Dosage: UNK
     Dates: start: 20030101

REACTIONS (1)
  - MYELODYSPLASTIC SYNDROME [None]
